FAERS Safety Report 7570348-0 (Version None)
Quarter: 2011Q2

REPORT INFORMATION
  Report Type: 
  Country: None (occurrence: None)
  Receive Date: 20110624
  Receipt Date: 20110609
  Transmission Date: 20111010
  Serious: Yes (Congenital Anomaly)
  Sender: FDA-Public Use
  Company Number: FI-WATSON-2011-09165

PATIENT

DRUGS (1)
  1. CITALOPRAM (UNKNOWN) [Suspect]
     Indication: DRUG EXPOSURE DURING PREGNANCY
     Route: 064

REACTIONS (2)
  - NEURAL TUBE DEFECT [None]
  - FOETAL ALCOHOL SYNDROME [None]
